FAERS Safety Report 17310884 (Version 1)
Quarter: 2020Q1

REPORT INFORMATION
  Report Type: Spontaneous
  Country: US (occurrence: US)
  Receive Date: 20200123
  Receipt Date: 20200123
  Transmission Date: 20200409
  Serious: No
  Sender: FDA-Public Use
  Company Number: US-ROCHE-2303730

PATIENT
  Sex: Female

DRUGS (4)
  1. TYLENOL [Concomitant]
     Active Substance: ACETAMINOPHEN
  2. ATENOLOL. [Concomitant]
     Active Substance: ATENOLOL
  3. RITUXAN [Suspect]
     Active Substance: RITUXIMAB
     Indication: WALDENSTROM^S MACROGLOBULINAEMIA
     Route: 065
  4. IMBRUVICA [Concomitant]
     Active Substance: IBRUTINIB

REACTIONS (5)
  - Feeling abnormal [Unknown]
  - Nausea [Unknown]
  - Heart rate increased [Unknown]
  - Asthenia [Unknown]
  - Chills [Unknown]
